FAERS Safety Report 7440195-9 (Version None)
Quarter: 2011Q2

REPORT INFORMATION
  Report Type: 
  Country: None (occurrence: None)
  Receive Date: 20110427
  Receipt Date: 20110418
  Transmission Date: 20111010
  Serious: Yes (Hospitalization)
  Sender: FDA-Public Use
  Company Number: FR-JNJFOC-20110403548

PATIENT
  Age: 65 Year
  Sex: Male

DRUGS (13)
  1. CARDENSIEL [Concomitant]
     Route: 065
  2. RIFADIN [Suspect]
     Route: 042
  3. PREVISCAN (FLUINDIONE) [Concomitant]
     Route: 065
  4. SERESTA [Concomitant]
     Route: 065
  5. LASIX [Concomitant]
     Route: 065
  6. CLINDAMYCIN [Suspect]
     Indication: ENDOCARDITIS
     Route: 042
  7. TARGOCID [Suspect]
     Indication: ENDOCARDITIS
     Route: 042
  8. RIFADIN [Suspect]
     Indication: ENDOCARDITIS
     Route: 042
  9. CORDARONE [Concomitant]
     Route: 065
  10. ELISOR [Concomitant]
     Route: 065
  11. TAVANIC [Suspect]
     Indication: ENDOCARDITIS
     Route: 048
  12. KARDEGIC [Concomitant]
     Route: 065
  13. TRIATEC [Concomitant]
     Route: 065

REACTIONS (4)
  - RASH [None]
  - PRURITUS [None]
  - TOXIC SKIN ERUPTION [None]
  - NEUTROPENIA [None]
